FAERS Safety Report 6248158-6 (Version None)
Quarter: 2009Q2

REPORT INFORMATION
  Report Type: 
  Country: None (occurrence: None)
  Receive Date: 20090629
  Receipt Date: 20090616
  Transmission Date: 20091009
  Serious: Yes (Other)
  Sender: FDA-Public Use
  Company Number: GB-RANBAXY-2009RR-25073

PATIENT
  Sex: Female

DRUGS (9)
  1. METFORMIN HCL [Suspect]
     Indication: DIABETES MELLITUS
     Route: 048
  2. RITUXIMAB [Suspect]
     Indication: MYELITIS TRANSVERSE
     Route: 042
  3. ALENDRONATE SODIUM [Concomitant]
  4. AMITRIPTYLINE HCL [Concomitant]
  5. CALCICHEW D3 [Concomitant]
  6. GABAPENTIN [Concomitant]
  7. OMEPRAZOLE [Concomitant]
  8. PARACETAMOL [Concomitant]
  9. SOLIFENACIN SUCCINATE [Concomitant]

REACTIONS (5)
  - C-REACTIVE PROTEIN INCREASED [None]
  - LACTIC ACIDOSIS [None]
  - LETHARGY [None]
  - MALAISE [None]
  - WHITE BLOOD CELL COUNT INCREASED [None]
